FAERS Safety Report 6260474-0 (Version None)
Quarter: 2009Q3

REPORT INFORMATION
  Report Type: 
  Country: None (occurrence: None)
  Receive Date: 20090708
  Receipt Date: 20090626
  Transmission Date: 20100115
  Serious: Yes (Other)
  Sender: FDA-Public Use
  Company Number: US-MYLANLABS-2009S1010026

PATIENT
  Age: 82 Year
  Sex: Male
  Weight: 68.04 kg

DRUGS (20)
  1. FENTANYL TRANSDERMAL SYSTEM [Suspect]
     Indication: BACK PAIN
     Dosage: CHANGED PATCHES Q48 HOURS
     Route: 062
     Dates: start: 20050101
  2. FENTANYL TRANSDERMAL SYSTEM [Suspect]
     Route: 062
  3. FENTANYL TRANSDERMAL SYSTEM [Suspect]
     Dosage: CHANGED PATCHES Q48 HOURS
     Route: 062
  4. BUMEX [Concomitant]
     Indication: FLUID RETENTION
     Route: 048
  5. PAXIL [Concomitant]
     Indication: DEPRESSION
     Route: 048
  6. TOPROL-XL [Concomitant]
     Indication: BLOOD PRESSURE INCREASED
     Route: 048
  7. NEXIUM [Concomitant]
     Indication: GASTROINTESTINAL DISORDER
     Route: 048
  8. ZYPREXA [Concomitant]
     Indication: MOOD DISORDER DUE TO A GENERAL MEDICAL CONDITION
     Route: 048
  9. AGGRENOX [Concomitant]
     Indication: CEREBROVASCULAR ACCIDENT
     Route: 048
  10. IPRATROPIUM BROMIDE AND ALBUTEROL SULFATE INHALATION SOLUTION [Concomitant]
     Indication: DYSPNOEA
     Route: 055
  11. SPIRIVA [Concomitant]
     Indication: CHRONIC OBSTRUCTIVE PULMONARY DISEASE
  12. OXYGEN [Concomitant]
  13. PYRIDOXINE [Concomitant]
     Indication: VITAMIN SUPPLEMENTATION
  14. MULTI-VITAMIN [Concomitant]
     Indication: VITAMIN SUPPLEMENTATION
  15. THIAMINE HCL [Concomitant]
     Indication: VITAMIN SUPPLEMENTATION
  16. VITAMIN E [Concomitant]
     Indication: VITAMIN SUPPLEMENTATION
  17. SENNA PLUS /00936101/ [Concomitant]
     Indication: ABNORMAL FAECES
  18. TUMS [Concomitant]
     Indication: DYSPEPSIA
  19. TYLENOL (CAPLET) [Concomitant]
     Indication: PAIN
  20. PRAVACHOL [Concomitant]
     Indication: BLOOD CHOLESTEROL

REACTIONS (5)
  - BACK PAIN [None]
  - DRUG INEFFECTIVE [None]
  - FEELING JITTERY [None]
  - HYPERHIDROSIS [None]
  - TREMOR [None]
